FAERS Safety Report 16240525 (Version 1)
Quarter: 2019Q2

REPORT INFORMATION
  Report Type: Spontaneous
  Country: US (occurrence: US)
  Receive Date: 20190425
  Receipt Date: 20190425
  Transmission Date: 20190711
  Serious: No
  Sender: FDA-Public Use
  Company Number: US-GLAXOSMITHKLINE-US2019072447

PATIENT
  Sex: Female

DRUGS (3)
  1. PREDNISONE. [Suspect]
     Active Substance: PREDNISONE
  2. VENTOLIN HFA [Suspect]
     Active Substance: ALBUTEROL SULFATE
     Indication: RESPIRATORY TRACT INFECTION
     Dosage: 2 PUFFS EVERY 4 HOURS
  3. ZITROMAX [Suspect]
     Active Substance: AZITHROMYCIN

REACTIONS (3)
  - Wrong technique in product usage process [Unknown]
  - Cough [Unknown]
  - Product dose omission [Unknown]
